FAERS Safety Report 22612400 (Version 1)
Quarter: 2023Q2

REPORT INFORMATION
  Report Type: Spontaneous
  Country: CA (occurrence: CA)
  Receive Date: 20230617
  Receipt Date: 20230617
  Transmission Date: 20230722
  Serious: Yes (Other)
  Sender: FDA-Public Use
  Company Number: CA-TEVA-2023-CA-2898482

PATIENT
  Age: 37 Year
  Sex: Male

DRUGS (1)
  1. PREDNISONE [Suspect]
     Active Substance: PREDNISONE
     Indication: Product used for unknown indication
     Route: 064

REACTIONS (5)
  - Hair growth abnormal [Unknown]
  - Anxiety [Unknown]
  - Depression [Unknown]
  - Asthma [Unknown]
  - Foetal exposure during pregnancy [Unknown]
